FAERS Safety Report 9574883 (Version 1)
Quarter: 2013Q4

REPORT INFORMATION
  Report Type: Spontaneous
  Country: US (occurrence: US)
  Receive Date: 20131001
  Receipt Date: 20131001
  Transmission Date: 20140711
  Serious: No
  Sender: FDA-Public Use
  Company Number: US-BAYER-2013-118657

PATIENT
  Age: 18 Year
  Sex: Male

DRUGS (1)
  1. MAGNEVIST [Suspect]
     Indication: CARDIAC IMAGING PROCEDURE
     Dosage: 20 ML, ONCE
     Route: 042
     Dates: start: 20130926

REACTIONS (2)
  - Swelling face [None]
  - Hypoaesthesia [None]
